FAERS Safety Report 6508513-3 (Version None)
Quarter: 2009Q4

REPORT INFORMATION
  Report Type: 
  Country: None (occurrence: None)
  Receive Date: 20091221
  Receipt Date: 20090303
  Transmission Date: 20100525
  Serious: No
  Sender: FDA-Public Use
  Company Number: US-ASTRAZENECA-2008UW25590

PATIENT
  Age: 58 Year
  Sex: Female
  Weight: 59.9 kg

DRUGS (4)
  1. CRESTOR [Suspect]
     Dosage: UNKNOWN
     Route: 048
  2. NORVASC [Concomitant]
     Indication: HYPERTENSION
  3. LASIX [Concomitant]
     Indication: OEDEMA
  4. UNSPECIFIED [Concomitant]
     Indication: GASTROOESOPHAGEAL REFLUX DISEASE

REACTIONS (1)
  - URINE OUTPUT DECREASED [None]
